FAERS Safety Report 6449368-5 (Version None)
Quarter: 2009Q4

REPORT INFORMATION
  Report Type: 
  Country: None (occurrence: None)
  Receive Date: 20091120
  Receipt Date: 20081205
  Transmission Date: 20100525
  Serious: Yes (Other)
  Sender: FDA-Public Use
  Company Number: US-AMGEN-QUU320995

PATIENT
  Sex: Female
  Weight: 55.4 kg

DRUGS (3)
  1. ENBREL [Suspect]
     Indication: RHEUMATOID ARTHRITIS
     Route: 058
     Dates: start: 20080601
  2. SULFASALAZINE [Concomitant]
     Route: 048
  3. METHOTREXATE [Concomitant]

REACTIONS (5)
  - DEPRESSION [None]
  - PRURITUS [None]
  - RHEUMATOID ARTHRITIS [None]
  - SKIN IRRITATION [None]
  - SWELLING [None]
